FAERS Safety Report 25617209 (Version 1)
Quarter: 2025Q3

REPORT INFORMATION
  Report Type: Spontaneous
  Country: US (occurrence: None)
  Receive Date: 20250728
  Receipt Date: 20250728
  Transmission Date: 20251020
  Serious: Yes (Hospitalization)
  Sender: FDA-CTU
  Company Number: None

PATIENT
  Age: 27 Year
  Sex: Female
  Weight: 113.85 kg

DRUGS (10)
  1. SERTRALINE HYDROCHLORIDE [Suspect]
     Active Substance: SERTRALINE HYDROCHLORIDE
     Indication: Obsessive-compulsive disorder
     Dates: start: 20250718, end: 20250723
  2. SERTRALINE HYDROCHLORIDE [Suspect]
     Active Substance: SERTRALINE HYDROCHLORIDE
     Indication: Endometriosis
  3. TRAMADOL [Suspect]
     Active Substance: TRAMADOL
  4. IBUPROFEN [Suspect]
     Active Substance: IBUPROFEN
  5. LYRICA [Concomitant]
     Active Substance: PREGABALIN
  6. rollator [Concomitant]
  7. B12 [Concomitant]
  8. IRON [Concomitant]
     Active Substance: IRON
  9. PRILOSEC [Concomitant]
     Active Substance: OMEPRAZOLE MAGNESIUM
  10. TUMS [Concomitant]
     Active Substance: CALCIUM CARBONATE

REACTIONS (9)
  - Drug interaction [None]
  - Abdominal pain upper [None]
  - Obsessive-compulsive disorder [None]
  - Nausea [None]
  - Post-traumatic stress disorder [None]
  - Nightmare [None]
  - Anxiety [None]
  - Illness anxiety disorder [None]
  - Influenza like illness [None]

NARRATIVE: CASE EVENT DATE: 20250724
